FAERS Safety Report 4824941-6 (Version None)
Quarter: 2005Q4

REPORT INFORMATION
  Report Type: 
  Country: None (occurrence: None)
  Receive Date: 20051110
  Receipt Date: 20051103
  Transmission Date: 20060501
  Serious: Yes (Death, Other)
  Sender: FDA-Public Use
  Company Number: US-MERCK-0511USA00651

PATIENT
  Age: 71 Year
  Sex: Male
  Weight: 107 kg

DRUGS (19)
  1. VIOXX [Suspect]
     Indication: ARTHRALGIA
     Route: 048
     Dates: start: 19990101, end: 20040101
  2. VIOXX [Suspect]
     Indication: RHEUMATOID ARTHRITIS
     Route: 048
     Dates: start: 19990101, end: 20040101
  3. COUMADIN [Concomitant]
     Indication: THROMBOSIS PROPHYLAXIS
     Route: 065
     Dates: start: 19870101, end: 20050101
  4. TOPROL-XL [Concomitant]
     Indication: HYPERTENSION
     Route: 065
     Dates: end: 20050101
  5. IMDUR [Concomitant]
     Route: 065
  6. SPIRONOLACTONE [Concomitant]
     Route: 065
  7. MEVACOR [Concomitant]
     Indication: BLOOD CHOLESTEROL INCREASED
     Route: 048
  8. FERROUS SULFATE [Concomitant]
     Route: 065
  9. HYTRIN [Concomitant]
     Indication: CARDIAC DISORDER
     Route: 065
  10. POTASSIUM CHLORIDE [Concomitant]
     Route: 065
  11. MAGNESIUM (UNSPECIFIED) [Concomitant]
     Route: 065
  12. VERAPAMIL MSD LP [Concomitant]
     Route: 048
  13. LANTUS [Concomitant]
     Route: 065
  14. NOVOLOG [Concomitant]
     Route: 065
  15. VITAMINS (UNSPECIFIED) [Concomitant]
     Route: 065
  16. MINERALS (UNSPECIFIED) [Concomitant]
     Route: 065
  17. TYLENOL (CAPLET) [Concomitant]
     Indication: ANALGESIC EFFECT
     Route: 065
     Dates: start: 20020101, end: 20050101
  18. IRBESARTAN [Concomitant]
     Route: 065
  19. LIPITOR [Concomitant]
     Route: 065
     Dates: end: 20050101

REACTIONS (15)
  - ARTERIOSCLEROSIS [None]
  - ATELECTASIS [None]
  - CARDIAC FAILURE CONGESTIVE [None]
  - CARDIAC VALVE DISEASE [None]
  - CARDIOMEGALY [None]
  - DEATH [None]
  - DYSPEPSIA [None]
  - DYSPNOEA [None]
  - HAEMORRHAGE [None]
  - HEART RATE IRREGULAR [None]
  - HYPOXIA [None]
  - OEDEMA [None]
  - OEDEMA PERIPHERAL [None]
  - PULMONARY EMBOLISM [None]
  - THROMBOSIS [None]
